FAERS Safety Report 7963402-2 (Version None)
Quarter: 2011Q4

REPORT INFORMATION
  Report Type: 
  Country: None (occurrence: None)
  Receive Date: 20111122
  Receipt Date: 20110822
  Transmission Date: 20120403
  Serious: No
  Sender: FDA-Public Use
  Company Number: PHHY2011US68681

PATIENT
  Age: 51 Year
  Sex: Female

DRUGS (5)
  1. GILENYA [Suspect]
     Indication: MULTIPLE SCLEROSIS
     Dosage: 0.5 MG, QD, ORAL
     Route: 048
     Dates: start: 20110725, end: 20110819
  2. ZOLOFT [Concomitant]
  3. NORCO [Suspect]
     Dosage: 325 MG, OT
  4. BACLOFEN [Concomitant]
  5. ALPRAZOLAM [Concomitant]

REACTIONS (7)
  - PAIN [None]
  - INSOMNIA [None]
  - FATIGUE [None]
  - DIARRHOEA [None]
  - MUSCULOSKELETAL STIFFNESS [None]
  - OEDEMA PERIPHERAL [None]
  - URTICARIA [None]
